FAERS Safety Report 7783576-6 (Version None)
Quarter: 2011Q3

REPORT INFORMATION
  Report Type: 
  Country: None (occurrence: None)
  Receive Date: 20110928
  Receipt Date: 20110808
  Transmission Date: 20111222
  Serious: Yes (Death)
  Sender: FDA-Public Use
  Company Number: US-TYCO HEALTHCARE/MALLINCKRODT-T201101559

PATIENT
  Age: 15 Year
  Sex: Male

DRUGS (3)
  1. OXYCODONE HCL [Suspect]
  2. HYDROMORPHONE HCL [Suspect]
  3. ALPRAZOLAM [Suspect]

REACTIONS (1)
  - MULTIPLE DRUG OVERDOSE [None]
